FAERS Safety Report 7921564-7 (Version None)
Quarter: 2011Q4

REPORT INFORMATION
  Report Type: 
  Country: None (occurrence: None)
  Receive Date: 20111117
  Receipt Date: 20111113
  Transmission Date: 20120403
  Serious: Yes (Other)
  Sender: FDA-Public Use
  Company Number: PHHY2011DK100186

PATIENT
  Age: 60 Year
  Sex: Female

DRUGS (1)
  1. PROLEUKIN [Suspect]
     Indication: METASTASIS

REACTIONS (4)
  - DRUG INTOLERANCE [None]
  - PARAESTHESIA [None]
  - HYPOAESTHESIA [None]
  - PAIN [None]
